FAERS Safety Report 8606225-3 (Version None)
Quarter: 2012Q3

REPORT INFORMATION
  Report Type: 
  Country: None (occurrence: None)
  Receive Date: 20120820
  Receipt Date: 20120809
  Transmission Date: 20120928
  Serious: Yes (Hospitalization)
  Sender: FDA-Public Use
  Company Number: JP-UCBSA-063524

PATIENT
  Age: 59 Year
  Sex: Female

DRUGS (7)
  1. REBAMIPIDE [Concomitant]
  2. PREDNISOLONE [Concomitant]
     Dates: start: 20111102
  3. KETOPROFEN [Concomitant]
     Dates: start: 20110519
  4. CERTOLIZUMAB PEGOL [Suspect]
     Indication: RHEUMATOID ARTHRITIS
     Route: 058
     Dates: start: 20100105
  5. DICLOFENAC SODIUM [Concomitant]
  6. TACROLIMUS [Concomitant]
  7. RABEPRAZOLE SODIUM [Concomitant]

REACTIONS (1)
  - CYSTITIS [None]
